FAERS Safety Report 7306054-7 (Version None)
Quarter: 2011Q1

REPORT INFORMATION
  Report Type: 
  Country: None (occurrence: None)
  Receive Date: 20110222
  Receipt Date: 20110218
  Transmission Date: 20110831
  Serious: Yes (Other)
  Sender: FDA-Public Use
  Company Number: US-PFIZER INC-2011036712

PATIENT
  Sex: Female
  Weight: 90.703 kg

DRUGS (6)
  1. HYDROCHLOROTHIAZIDE [Concomitant]
     Dosage: UNK
  2. ZOLOFT [Concomitant]
     Dosage: UNK
  3. POTASSIUM [Concomitant]
     Dosage: UNK
  4. LEVOTHYROXINE [Concomitant]
     Indication: THYROID DISORDER
     Dosage: UNK
  5. ATENOLOL [Concomitant]
     Dosage: UNK
  6. LIPITOR [Suspect]
     Indication: BLOOD CHOLESTEROL INCREASED
     Dosage: 10 MG, DAILY
     Route: 048
     Dates: end: 20110218

REACTIONS (4)
  - RESPIRATORY TRACT INFECTION [None]
  - LIVER DISORDER [None]
  - MYALGIA [None]
  - BLOOD CHOLESTEROL INCREASED [None]
